FAERS Safety Report 25377541 (Version 3)
Quarter: 2025Q2

REPORT INFORMATION
  Report Type: Report from Study
  Country: US (occurrence: US)
  Receive Date: 20250530
  Receipt Date: 20250620
  Transmission Date: 20250717
  Serious: No
  Sender: SANDOZ
  Company Number: US-SANDOZ-SDZ2025US037294

PATIENT
  Age: 10 Year
  Sex: Male

DRUGS (6)
  1. OMNITROPE [Suspect]
     Active Substance: SOMATROPIN
     Dosage: 1 MG, QD
     Route: 058
     Dates: start: 20250521
  2. OMNITROPE [Suspect]
     Active Substance: SOMATROPIN
     Dosage: 1 MG, QD
     Route: 058
     Dates: start: 20250521
  3. OMNITROPE [Suspect]
     Active Substance: SOMATROPIN
     Dosage: 10 MG, QD
     Route: 065
     Dates: start: 20250604
  4. OMNITROPE [Suspect]
     Active Substance: SOMATROPIN
     Dosage: 10 MG, QD
     Route: 065
     Dates: start: 20250604
  5. OMNITROPE [Suspect]
     Active Substance: SOMATROPIN
     Indication: Hypopituitarism
     Dosage: 1 MG, QD
     Route: 058
  6. OMNITROPE [Suspect]
     Active Substance: SOMATROPIN
     Indication: Hypopituitarism
     Dosage: 1 MG, QD
     Route: 058

REACTIONS (3)
  - Circumstance or information capable of leading to medication error [Unknown]
  - Device breakage [Unknown]
  - Device leakage [Unknown]

NARRATIVE: CASE EVENT DATE: 20250501
